FAERS Safety Report 21045432 (Version 1)
Quarter: 2022Q3

REPORT INFORMATION
  Report Type: Spontaneous
  Country: BR (occurrence: BR)
  Receive Date: 20220706
  Receipt Date: 20220706
  Transmission Date: 20221026
  Serious: Yes (Hospitalization)
  Sender: FDA-Public Use
  Company Number: BR-LUPIN PHARMACEUTICALS INC.-2022-09222

PATIENT
  Age: 52 Year
  Sex: Female

DRUGS (9)
  1. SULFAMETHOXAZOLE AND TRIMETHOPRIM [Suspect]
     Active Substance: SULFAMETHOXAZOLE\TRIMETHOPRIM
     Indication: Toxoplasmosis
     Dosage: UNK
     Route: 065
  2. PYRIMETHAMINE [Suspect]
     Active Substance: PYRIMETHAMINE
     Indication: Toxoplasmosis
     Dosage: 50 MG, QD
     Route: 065
     Dates: start: 202001
  3. SULFADIAZINE [Suspect]
     Active Substance: SULFADIAZINE
     Indication: Toxoplasmosis
     Dosage: 4 GRAM, QD
     Route: 065
     Dates: start: 202001
  4. LEUCOVORIN [Suspect]
     Active Substance: LEUCOVORIN
     Indication: Toxoplasmosis
     Dosage: 15 MG
     Route: 065
     Dates: start: 202001
  5. PREDNISONE [Suspect]
     Active Substance: PREDNISONE
     Indication: Papilloedema
     Dosage: 40 MG, QD
     Route: 048
     Dates: start: 201912
  6. PREDNISONE [Suspect]
     Active Substance: PREDNISONE
     Indication: Toxoplasmosis
     Dosage: 0.6 MILLIGRAM/KILOGRAM, QD
     Route: 065
     Dates: start: 202001
  7. METHYLPREDNISOLONE [Concomitant]
     Active Substance: METHYLPREDNISOLONE
     Indication: Papilloedema
     Dosage: 15 MILLIGRAM/KILOGRAM, QD
     Route: 042
  8. DORZOLAMIDE [Concomitant]
     Active Substance: DORZOLAMIDE
     Indication: Intraocular pressure increased
     Dosage: 20 MILLIGRAM PER MILLILITRE
     Route: 047
  9. TIMOLOL MALEATE [Concomitant]
     Active Substance: TIMOLOL MALEATE
     Indication: Intraocular pressure increased
     Dosage: 05 MILLIGRAM PER MILLILITRE (12/12 HOURS)
     Route: 047

REACTIONS (1)
  - Abdominal discomfort [Recovering/Resolving]
